FAERS Safety Report 4594738-3 (Version None)
Quarter: 2005Q1

REPORT INFORMATION
  Report Type: 
  Country: None (occurrence: None)
  Receive Date: 20050301
  Receipt Date: 20050218
  Transmission Date: 20050727
  Serious: Yes (Hospitalization)
  Sender: FDA-Public Use
  Company Number: US-BRISTOL-MYERS SQUIBB COMPANY-12869251

PATIENT
  Age: 63 Year
  Sex: Female
  Weight: 62 kg

DRUGS (6)
  1. PACLITAXEL [Suspect]
     Indication: OVARIAN CANCER
     Dosage: AS STUDY MED: 284 MG 01-APR-2004 TIL 15-JUL-2004; AS COLSOLIDATION THERAPY BEGINNING 25-AUG-2004
     Route: 042
     Dates: start: 20050114
  2. CARBOPLATIN [Suspect]
     Indication: OVARIAN CANCER
     Route: 042
     Dates: start: 20040401, end: 20040715
  3. KYTRIL [Concomitant]
     Route: 042
  4. DEXAMETHASONE [Concomitant]
     Route: 042
  5. CIMETIDINE [Concomitant]
  6. DIPHENHYDRAMINE HCL [Concomitant]
     Route: 042

REACTIONS (11)
  - ACIDOSIS [None]
  - ANAEMIA [None]
  - COAGULOPATHY [None]
  - GASTROINTESTINAL NECROSIS [None]
  - GENERALISED OEDEMA [None]
  - HAEMORRHAGIC ASCITES [None]
  - INTERNAL HERNIA [None]
  - LEUKOPENIA [None]
  - PLEURAL EFFUSION [None]
  - RESPIRATORY FAILURE [None]
  - THROMBOCYTOPENIA [None]
